FAERS Safety Report 9146968 (Version 1)
Quarter: 2013Q1

REPORT INFORMATION
  Report Type: Spontaneous
  Country: AU (occurrence: AU)
  Receive Date: 20130307
  Receipt Date: 20130307
  Transmission Date: 20140127
  Serious: Yes (Hospitalization)
  Sender: FDA-Public Use
  Company Number: PHHY2013AU021938

PATIENT
  Sex: Male

DRUGS (5)
  1. TASIGNA [Suspect]
     Indication: CHRONIC MYELOID LEUKAEMIA
     Route: 048
     Dates: start: 20110901, end: 201111
  2. SPRYCEL [Suspect]
     Indication: CHRONIC MYELOID LEUKAEMIA
     Dates: start: 201111
  3. CRESTOR [Concomitant]
  4. PLAVIX [Concomitant]
  5. MINIPRESS [Concomitant]

REACTIONS (4)
  - Respiratory disorder [Unknown]
  - Oedema [Unknown]
  - Malaise [Unknown]
  - Eye pain [Unknown]
